FAERS Safety Report 10013986 (Version 1)
Quarter: 2014Q1

REPORT INFORMATION
  Report Type: Report from Study
  Country: DE (occurrence: DE)
  Receive Date: 20140316
  Receipt Date: 20140316
  Transmission Date: 20141002
  Serious: Yes (Hospitalization)
  Sender: FDA-Public Use
  Company Number: DE-ROCHE-1363234

PATIENT
  Age: 55 Year
  Sex: Female

DRUGS (12)
  1. TOCILIZUMAB [Suspect]
     Indication: RHEUMATOID ARTHRITIS
     Route: 065
     Dates: start: 201304
  2. METHOTREXATE [Suspect]
     Indication: PRODUCT USED FOR UNKNOWN INDICATION
     Route: 048
     Dates: start: 201108
  3. FOLSAN [Concomitant]
  4. OXYCODON [Concomitant]
  5. PANTOPRAZOL [Concomitant]
  6. L-THYROXIN [Concomitant]
  7. BISOPROLOL [Concomitant]
  8. FLUOXETIN [Concomitant]
  9. VIGANTOLETTEN [Concomitant]
  10. TORASEMID [Concomitant]
  11. AMITRIPTYLINE [Concomitant]
  12. PREDNISOLON [Concomitant]

REACTIONS (1)
  - VIIth nerve paralysis [Recovered/Resolved]
